FAERS Safety Report 8805422 (Version 1)
Quarter: 2012Q4

REPORT INFORMATION
  Report Type: 
  Country: KR (occurrence: KR)
  Receive Date: 20120924
  Receipt Date: 20120924
  Transmission Date: 20130627
  Serious: Yes (Death, Other)
  Sender: FDA-Public Use
  Company Number: KR-ROCHE-1107274

PATIENT
  Age: 43 Year
  Sex: Female
  Weight: 55.6 kg

DRUGS (11)
  1. AVASTIN [Suspect]
     Indication: COLON CANCER
     Route: 065
     Dates: start: 20120524, end: 20120607
  2. OXALIPLATIN [Suspect]
     Indication: COLON CANCER
     Route: 065
     Dates: start: 20120508, end: 20120607
  3. LEUCOVORIN [Suspect]
     Indication: COLON CANCER
     Route: 065
     Dates: start: 20120508, end: 20120607
  4. 5-FU [Suspect]
     Indication: COLON CANCER
     Route: 065
     Dates: start: 20120508, end: 20120607
  5. 5-FU [Suspect]
     Route: 065
     Dates: start: 20120508, end: 20120607
  6. METHIMAZOLE [Concomitant]
     Route: 065
  7. ARIPIPRAZOLE [Concomitant]
     Route: 065
  8. DEXIBUPROFEN [Concomitant]
     Route: 065
  9. RABEPRAZOLE [Concomitant]
     Route: 065
  10. HYDROMORPHONE [Concomitant]
     Route: 065
  11. AMLODIPINE [Concomitant]
     Route: 065

REACTIONS (2)
  - Disease progression [Fatal]
  - Spontaneous haematoma [Recovered/Resolved]
